FAERS Safety Report 24183104 (Version 3)
Quarter: 2025Q4

REPORT INFORMATION
  Report Type: Spontaneous
  Country: EU (occurrence: EU)
  Receive Date: 20240807
  Receipt Date: 20251010
  Transmission Date: 20260119
  Serious: Yes (Other)
  Sender: AUROBINDO
  Company Number: EU-CELLTRION INC.-2024IT016493

PATIENT
  Age: 49 Year
  Sex: Female

DRUGS (3)
  1. DOCETAXEL [Suspect]
     Active Substance: DOCETAXEL
     Indication: Inflammatory carcinoma of the breast
     Dosage: 7 CYCLICAL (SEVEN CYCLES)
     Route: 065
     Dates: start: 202203, end: 202209
  2. TRASTUZUMAB [Suspect]
     Active Substance: TRASTUZUMAB
     Indication: Inflammatory carcinoma of the breast
     Dosage: 7 CYCLICAL(SEVEN CYCLES)
     Route: 065
     Dates: start: 202203, end: 202209
  3. PERTUZUMAB [Suspect]
     Active Substance: PERTUZUMAB
     Indication: Inflammatory carcinoma of the breast
     Dosage: 7 CYCLICAL (SEVEN CYCLES)
     Route: 065
     Dates: start: 202203, end: 202209

REACTIONS (3)
  - Recall phenomenon [Recovered/Resolved]
  - Therapy partial responder [Unknown]
  - Inflammation [Recovered/Resolved]
